FAERS Safety Report 16153143 (Version 2)
Quarter: 2020Q1

REPORT INFORMATION
  Report Type: Spontaneous
  Country: GB (occurrence: GB)
  Receive Date: 20190403
  Receipt Date: 20200204
  Transmission Date: 20200409
  Serious: Yes (Other)
  Sender: FDA-Public Use
  Company Number: GB-TEVA-2019-GB-1032719

PATIENT
  Age: 49 Year
  Sex: Male
  Weight: 145 kg

DRUGS (3)
  1. RAMIPRIL. [Concomitant]
     Active Substance: RAMIPRIL
     Dosage: 1 DOSAGE FORMS DAILY; IN THE MORNING.
     Dates: start: 20150603
  2. OMEPRAZOLE. [Concomitant]
     Active Substance: OMEPRAZOLE
     Dosage: DAILY
     Dates: start: 20131009
  3. INDAPAMIDE. [Suspect]
     Active Substance: INDAPAMIDE
     Indication: ESSENTIAL HYPERTENSION
     Dosage: 2.5 MILLIGRAM DAILY; IN THE MORNING
     Dates: start: 20150930, end: 20180720

REACTIONS (2)
  - Erythema [Unknown]
  - External ear pain [Recovered/Resolved]

NARRATIVE: CASE EVENT DATE: 20150930
